FAERS Safety Report 10462590 (Version 2)
Quarter: 2014Q3

REPORT INFORMATION
  Report Type: Report from Study
  Country: GB (occurrence: GB)
  Receive Date: 20140918
  Receipt Date: 20140918
  Transmission Date: 20150326
  Serious: Yes (Disabling)
  Sender: FDA-Public Use
  Company Number: GB-ABBVIE-14P-167-1231568-00

PATIENT
  Age: 58 Year
  Sex: Female

DRUGS (5)
  1. PARACETAMOL [Concomitant]
     Active Substance: ACETAMINOPHEN
     Indication: RHEUMATOID ARTHRITIS
     Route: 048
  2. METHOTREXATE [Concomitant]
     Active Substance: METHOTREXATE
     Indication: RHEUMATOID ARTHRITIS
  3. HUMIRA [Suspect]
     Active Substance: ADALIMUMAB
     Indication: RHEUMATOID ARTHRITIS
     Route: 050
     Dates: start: 201403, end: 20140605
  4. PARACETAMOL [Concomitant]
     Active Substance: ACETAMINOPHEN
     Indication: ARTHRALGIA
  5. VOLTAROL [Concomitant]
     Active Substance: DICLOFENAC SODIUM
     Indication: RHEUMATOID ARTHRITIS
     Route: 048

REACTIONS (20)
  - Muscular weakness [Recovering/Resolving]
  - Weight decreased [Unknown]
  - Nasal oedema [Unknown]
  - Hypersensitivity [Recovering/Resolving]
  - Dizziness [Unknown]
  - Increased appetite [Unknown]
  - Hypertension [Unknown]
  - Skin discolouration [Recovering/Resolving]
  - Hypotension [Recovering/Resolving]
  - Heart rate increased [Recovering/Resolving]
  - Joint injury [Unknown]
  - Rash [Unknown]
  - Arthralgia [Recovering/Resolving]
  - Psoriasis [Unknown]
  - Peripheral swelling [Recovering/Resolving]
  - Hypotension [Unknown]
  - Joint swelling [Recovering/Resolving]
  - Gait disturbance [Recovering/Resolving]
  - Bursitis [Unknown]
  - Pain [Not Recovered/Not Resolved]

NARRATIVE: CASE EVENT DATE: 201403
